FAERS Safety Report 14137184 (Version 3)
Quarter: 2017Q4

REPORT INFORMATION
  Report Type: Spontaneous
  Country: US (occurrence: US)
  Receive Date: 20171027
  Receipt Date: 20171213
  Transmission Date: 20180321
  Serious: Yes (Life-Threatening, Hospitalization, Other)
  Sender: FDA-Public Use
  Company Number: US-SUN PHARMACEUTICAL INDUSTRIES LTD-2017US-153447

PATIENT
  Age: 26 Year
  Sex: Female

DRUGS (4)
  1. DILTIAZEM. [Interacting]
     Active Substance: DILTIAZEM
     Dosage: INGESTED 80 TABLETS (30 MG)
     Route: 048
  2. METOPROLOL. [Interacting]
     Active Substance: METOPROLOL
     Indication: ATRIAL TACHYCARDIA
     Dosage: UNK
     Route: 048
  3. METOPROLOL. [Interacting]
     Active Substance: METOPROLOL
     Indication: PRODUCT USED FOR UNKNOWN INDICATION
     Dosage: INGESTED A NEARLY FULL BOTTLE OF METOPROLOL TARTRATE (25 MG) TABLETS
     Route: 048
  4. DILTIAZEM. [Suspect]
     Active Substance: DILTIAZEM
     Indication: ATRIAL TACHYCARDIA
     Dosage: UNK
     Route: 048

REACTIONS (8)
  - Suicide attempt [Unknown]
  - Toxicity to various agents [Unknown]
  - Cardiac arrest [Recovered/Resolved]
  - Pulmonary oedema [Recovered/Resolved]
  - Intentional overdose [Unknown]
  - Drug interaction [Unknown]
  - Hypotension [Recovered/Resolved]
  - Bradyarrhythmia [Recovered/Resolved]
